FAERS Safety Report 8498477-8 (Version None)
Quarter: 2012Q3

REPORT INFORMATION
  Report Type: 
  Country: None (occurrence: None)
  Receive Date: 20120709
  Receipt Date: 20120625
  Transmission Date: 20120928
  Serious: No
  Sender: FDA-Public Use
  Company Number: US-AMGEN-USASP2012037201

PATIENT
  Age: 62 Year
  Sex: Female
  Weight: 80.272 kg

DRUGS (17)
  1. PREDNISONE [Concomitant]
     Dosage: TAKE 5 MG TABLET FOR 6 MG IN AM: 4MG IN PM
     Route: 048
     Dates: start: 20120222
  2. LORAZEPAM [Concomitant]
     Dosage: 0.5 MG,, TAKE 1 TABLET DAILY AT BEDTIME
     Route: 048
  3. METFORMIN HCL [Concomitant]
     Dosage: 1000 MG, 2 TABLETS TWICE DAILY
     Route: 048
  4. PREDNISONE [Concomitant]
     Dosage: 10 MG, QD
     Route: 048
     Dates: start: 20120222
  5. VITAMIN B-12 [Concomitant]
     Dosage: 1000 MCI/G, QD, AS DIRECTED
     Dates: start: 20120323
  6. LEXAPRO [Concomitant]
     Dosage: 10 MG, 0.5 TABLET DAILY
     Route: 048
  7. METHOTREXATE SODIUM [Concomitant]
     Dosage: 25 MG/ML, 0.8 ML WEEKLY
     Dates: start: 20120326
  8. ASPIRIN [Concomitant]
     Dosage: 81 MG, QD
  9. IRON [Concomitant]
     Dosage: 325 MG, QD, 1 TABLET DAILY AS DIRECTED
     Route: 048
     Dates: start: 20120104
  10. VITAMIN D [Concomitant]
     Dosage: 1000 UNIT, QD
     Route: 048
     Dates: start: 20111129
  11. CALCIUM +D                         /00188401/ [Concomitant]
     Dosage: 600-400 MG
     Route: 048
  12. FOLIC ACID [Concomitant]
     Dosage: 1 MG, 2 TABLETS DAILY
     Dates: start: 20111211
  13. MULTI-VIT WITH FLUORIDE AND IRON [Concomitant]
     Dosage: 0.25-10 MG,
     Route: 048
  14. ENBREL [Suspect]
     Indication: RHEUMATOID ARTHRITIS
     Dosage: 50 MG/ML, QWK
     Route: 058
     Dates: start: 20120223
  15. ALEVE [Concomitant]
     Dosage: 220 MG, 2 TABLET DAILY
  16. PREVACID [Concomitant]
     Dosage: 30 MG, 1 CAPSULE EVERY OTHER DAY
     Route: 048
  17. TRAMADOL HCL [Concomitant]
     Dosage: 50 MG, 2 TABLETS 4 TIMES DAILY PRN
     Route: 048

REACTIONS (3)
  - CONTUSION [None]
  - RASH PAPULAR [None]
  - STOMATITIS [None]
